FAERS Safety Report 17132365 (Version 1)
Quarter: 2019Q4

REPORT INFORMATION
  Report Type: Spontaneous
  Country: JP (occurrence: JP)
  Receive Date: 20191210
  Receipt Date: 20191210
  Transmission Date: 20200122
  Serious: Yes (Other)
  Sender: FDA-Public Use
  Company Number: JP-SUN PHARMACEUTICAL INDUSTRIES LTD-2019RR-230146

PATIENT
  Age: 66 Year
  Sex: Male

DRUGS (6)
  1. NAB-PACLITAXEL [Suspect]
     Active Substance: PACLITAXEL
     Indication: PANCREATIC CARCINOMA METASTATIC
     Dosage: 125 MILLIGRAM/SQ. METER
     Route: 065
  2. NAB-PACLITAXEL [Suspect]
     Active Substance: PACLITAXEL
     Dosage: 75 MILLIGRAM/SQ. METER, 1DOSE/2 WEEKS; 18 CYCLES
     Route: 065
  3. GEMCITABINE. [Suspect]
     Active Substance: GEMCITABINE
     Indication: PANCREATIC CARCINOMA METASTATIC
     Dosage: 1000 MILLIGRAM/SQ. METER, UNK
     Route: 065
  4. GEMCITABINE. [Suspect]
     Active Substance: GEMCITABINE
     Dosage: 600 MILLIGRAM/SQ. METER, 1DOSE/2 WEEKS; 18 CYCLES
     Route: 065
  5. GEMCITABINE. [Suspect]
     Active Substance: GEMCITABINE
     Dosage: 800 MILLIGRAM/SQ. METER, UNK
     Route: 065
  6. NAB-PACLITAXEL [Suspect]
     Active Substance: PACLITAXEL
     Dosage: 100 MILLIGRAM/SQ. METER
     Route: 065

REACTIONS (6)
  - Disease progression [Not Recovered/Not Resolved]
  - Cachexia [Unknown]
  - Metastasis [Unknown]
  - General physical health deterioration [Unknown]
  - Pneumonia [Recovering/Resolving]
  - Therapeutic product effect incomplete [Unknown]
